FAERS Safety Report 9309251 (Version 2)
Quarter: 2013Q4

REPORT INFORMATION
  Report Type: Spontaneous
  Country: US (occurrence: US)
  Receive Date: 20130525
  Receipt Date: 20131126
  Transmission Date: 20140711
  Serious: No
  Sender: FDA-Public Use
  Company Number: US-BRISTOL-MYERS SQUIBB COMPANY-18580597

PATIENT
  Age: 48 Year
  Sex: Male
  Weight: 102.04 kg

DRUGS (4)
  1. BYDUREON 2MG VIAL + SYRINGE [Suspect]
     Indication: TYPE 2 DIABETES MELLITUS
     Dosage: THERAPY ON 14JUL13,21JUL13
     Route: 058
     Dates: start: 2012
  2. GLUCOTROL [Concomitant]
  3. METFORMIN [Concomitant]
  4. WELCHOL [Concomitant]

REACTIONS (4)
  - Blood glucose increased [Recovering/Resolving]
  - Injection site nodule [Unknown]
  - Injection site erythema [Unknown]
  - Injection site pruritus [Unknown]
